FAERS Safety Report 8559993-3 (Version None)
Quarter: 2012Q3

REPORT INFORMATION
  Report Type: 
  Country: None (occurrence: None)
  Receive Date: 20120802
  Receipt Date: 20120727
  Transmission Date: 20120928
  Serious: Yes (Death, Other)
  Sender: FDA-Public Use
  Company Number: VE-PFIZER INC-2012175974

PATIENT
  Age: 56 Year
  Sex: Female

DRUGS (1)
  1. LYRICA [Suspect]
     Indication: SYSTEMIC LUPUS ERYTHEMATOSUS
     Dosage: 75 MG, 1X/DAY
     Route: 048
     Dates: start: 20050101

REACTIONS (3)
  - METASTASES TO CENTRAL NERVOUS SYSTEM [None]
  - SARCOMA [None]
  - RESPIRATORY FAILURE [None]
